FAERS Safety Report 9164646 (Version 1)
Quarter: 2013Q1

REPORT INFORMATION
  Report Type: Spontaneous
  Country: US (occurrence: None)
  Receive Date: 20130301
  Receipt Date: 20130301
  Transmission Date: 20140127
  Serious: Yes (Death, Other)
  Sender: FDA-Public Use
  Company Number: SYM-2013-00953

PATIENT
  Age: 71 Year
  Sex: Male

DRUGS (2)
  1. XENAZINE [Suspect]
     Indication: DYSTONIA
     Route: 048
     Dates: start: 20120505, end: 201301
  2. XENAZINE [Suspect]
     Indication: PARKINSONISM
     Route: 048
     Dates: start: 20120505, end: 201301

REACTIONS (1)
  - Death [None]
